FAERS Safety Report 8091281-4 (Version None)
Quarter: 2012Q1

REPORT INFORMATION
  Report Type: 
  Country: None (occurrence: None)
  Receive Date: 20120129
  Receipt Date: 20111025
  Transmission Date: 20120608
  Serious: No
  Sender: FDA-Public Use
  Company Number: US-ABBOTT-11P-163-0868255-00

PATIENT
  Sex: Female
  Weight: 63.56 kg

DRUGS (16)
  1. BETAMETHASONE DIPROPIONATE [Concomitant]
     Indication: PSORIASIS
     Dosage: FOR HEAD BREAKOUT
  2. LOCOID [Concomitant]
     Indication: PSORIASIS
  3. VITAMIN TAB [Concomitant]
     Indication: VITAMIN SUPPLEMENTATION
  4. HUMIRA [Suspect]
     Dates: start: 20111001
  5. SINGULAIR [Concomitant]
     Indication: SEASONAL ALLERGY
  6. CORDRAN TAPE [Concomitant]
     Indication: PSORIASIS
     Dosage: FOR BREAKOUT
  7. DIPROLENE [Concomitant]
     Indication: PSORIASIS
  8. TACLONEX [Concomitant]
     Indication: PSORIASIS
  9. OMEPRAZOLE [Concomitant]
     Indication: GASTROOESOPHAGEAL REFLUX DISEASE
     Dosage: ONE DAILY
  10. HUMIRA [Suspect]
     Indication: PSORIASIS
     Dates: end: 20111001
  11. DETROL [Concomitant]
     Indication: URINARY TRACT DISORDER
  12. KENALOG [Concomitant]
     Indication: PRURITUS
  13. SPIRONOLACTONE [Concomitant]
     Indication: PRODUCT USED FOR UNKNOWN INDICATION
  14. DESOXIMETASONE [Concomitant]
     Indication: PSORIASIS
  15. LORAZEPAM [Concomitant]
     Indication: INSOMNIA
  16. LORAZEPAM [Concomitant]
     Indication: ANXIETY

REACTIONS (1)
  - PSORIASIS [None]
